FAERS Safety Report 20605443 (Version 1)
Quarter: 2022Q1

REPORT INFORMATION
  Report Type: Spontaneous
  Country: US (occurrence: US)
  Receive Date: 20220317
  Receipt Date: 20220317
  Transmission Date: 20220423
  Serious: No
  Sender: FDA-Public Use
  Company Number: US-GSKCCFUS-Case-01321026_AE-76848

PATIENT
  Age: 88 Year
  Sex: Male

DRUGS (2)
  1. TRELEGY ELLIPTA [Suspect]
     Active Substance: FLUTICASONE FUROATE\UMECLIDINIUM BROMIDE\VILANTEROL TRIFENATATE
     Indication: Dyspnoea
     Dosage: 1 PUFF(S), QD 200/62.5/25MCG
     Route: 055
     Dates: start: 20220305, end: 20220310
  2. ALBUTEROL RESPICLICK [Concomitant]
     Indication: Product used for unknown indication
     Dosage: UNK

REACTIONS (3)
  - Nocturia [Recovered/Resolved]
  - Oral mucosal blistering [Recovered/Resolved]
  - Device use error [Unknown]
